FAERS Safety Report 9383196 (Version 35)
Quarter: 2021Q1

REPORT INFORMATION
  Report Type: Other
  Country: CA (occurrence: CA)
  Receive Date: 20130704
  Receipt Date: 20210213
  Transmission Date: 20210420
  Serious: Yes (Hospitalization, Other)
  Sender: FDA-Public Use
  Company Number: CA-ROCHE-1074293

PATIENT
  Age: 50 Year
  Sex: Female
  Weight: 53.3 kg

DRUGS (32)
  1. ACTEMRA [Suspect]
     Active Substance: TOCILIZUMAB
     Route: 042
     Dates: start: 20150304
  2. ACTEMRA [Suspect]
     Active Substance: TOCILIZUMAB
     Route: 042
     Dates: start: 20200819, end: 2020
  3. ACTEMRA [Suspect]
     Active Substance: TOCILIZUMAB
     Route: 042
     Dates: start: 20201013, end: 2020
  4. LOSEC [Concomitant]
     Active Substance: OMEPRAZOLE
  5. ACTEMRA [Suspect]
     Active Substance: TOCILIZUMAB
     Dosage: DATE OF MOST RECENT DOSE: 26/JUN/2013.
     Route: 042
     Dates: start: 20121108
  6. ACTEMRA [Suspect]
     Active Substance: TOCILIZUMAB
     Route: 042
     Dates: start: 20191002
  7. ACTEMRA [Suspect]
     Active Substance: TOCILIZUMAB
     Route: 042
     Dates: start: 20191112
  8. ACTEMRA [Suspect]
     Active Substance: TOCILIZUMAB
     Route: 042
     Dates: start: 20200527, end: 20200527
  9. ACTEMRA [Suspect]
     Active Substance: TOCILIZUMAB
     Indication: RHEUMATOID ARTHRITIS
     Dosage: DATE OF LAST DOSE: 02/MAY/2012?FIRST RPAP INFUSION
     Route: 042
     Dates: start: 20120208
  10. ACTEMRA [Suspect]
     Active Substance: TOCILIZUMAB
     Route: 042
     Dates: start: 20120718
  11. ACTEMRA [Suspect]
     Active Substance: TOCILIZUMAB
     Route: 042
     Dates: start: 20190904, end: 20190904
  12. ACTEMRA [Suspect]
     Active Substance: TOCILIZUMAB
     Route: 042
     Dates: start: 20191210, end: 20200108
  13. ACTEMRA [Suspect]
     Active Substance: TOCILIZUMAB
     Route: 042
     Dates: start: 20200624, end: 2020
  14. ACTEMRA [Suspect]
     Active Substance: TOCILIZUMAB
     Route: 042
     Dates: start: 20200916, end: 2020
  15. ARAVA [Concomitant]
     Active Substance: LEFLUNOMIDE
  16. ACTEMRA [Suspect]
     Active Substance: TOCILIZUMAB
     Route: 042
     Dates: start: 20130827
  17. FOLIC ACID. [Concomitant]
     Active Substance: FOLIC ACID
  18. METHOTREXATE. [Concomitant]
     Active Substance: METHOTREXATE
  19. ACTEMRA [Suspect]
     Active Substance: TOCILIZUMAB
     Route: 042
     Dates: start: 20130529
  20. ACTEMRA [Suspect]
     Active Substance: TOCILIZUMAB
     Route: 042
     Dates: start: 20130925
  21. ACTEMRA [Suspect]
     Active Substance: TOCILIZUMAB
     Route: 042
     Dates: start: 20181205
  22. ACTEMRA [Suspect]
     Active Substance: TOCILIZUMAB
     Dosage: RECEIVED OUTSIDE RPAP.
     Route: 042
     Dates: start: 200605
  23. ACTEMRA [Suspect]
     Active Substance: TOCILIZUMAB
     Route: 042
     Dates: start: 20200204, end: 20200204
  24. ACTEMRA [Suspect]
     Active Substance: TOCILIZUMAB
     Route: 042
     Dates: start: 20200303, end: 20200303
  25. ACTEMRA [Suspect]
     Active Substance: TOCILIZUMAB
     Route: 042
     Dates: start: 20200428, end: 20200428
  26. VAGIFEM [Concomitant]
     Active Substance: ESTRADIOL
  27. ACTEMRA [Suspect]
     Active Substance: TOCILIZUMAB
     Route: 042
     Dates: start: 20200721, end: 2020
  28. PREDNISONE. [Concomitant]
     Active Substance: PREDNISONE
  29. ACTEMRA [Suspect]
     Active Substance: TOCILIZUMAB
     Route: 042
     Dates: start: 20201110
  30. ACTONEL [Concomitant]
     Active Substance: RISEDRONATE SODIUM
  31. IMURAN [Concomitant]
     Active Substance: AZATHIOPRINE
  32. CALCIUM [Concomitant]
     Active Substance: CALCIUM
     Route: 065

REACTIONS (26)
  - Injection site swelling [Unknown]
  - Infection [Unknown]
  - Infusion related reaction [Unknown]
  - Illness [Unknown]
  - Nasopharyngitis [Not Recovered/Not Resolved]
  - Blood pressure systolic decreased [Unknown]
  - Oxygen saturation decreased [Unknown]
  - Heart rate decreased [Unknown]
  - White blood cell count decreased [Unknown]
  - Rheumatoid arthritis [Unknown]
  - Weight increased [Recovering/Resolving]
  - Hypotension [Unknown]
  - Blood pressure diastolic decreased [Unknown]
  - Feeling abnormal [Not Recovered/Not Resolved]
  - Drug ineffective [Unknown]
  - Leukopenia [Unknown]
  - Pharyngitis [Unknown]
  - Ear infection [Unknown]
  - Lower respiratory tract infection [Recovering/Resolving]
  - Intentional product use issue [Unknown]
  - Pneumonia [Not Recovered/Not Resolved]
  - Weight decreased [Unknown]
  - Off label use [Unknown]
  - Bone disorder [Recovering/Resolving]
  - Blood pressure fluctuation [Unknown]
  - Vulvovaginal dryness [Not Recovered/Not Resolved]

NARRATIVE: CASE EVENT DATE: 20120511
